FAERS Safety Report 24221767 (Version 2)
Quarter: 2025Q1

REPORT INFORMATION
  Report Type: Report from Study
  Country: US (occurrence: US)
  Receive Date: 20240819
  Receipt Date: 20250325
  Transmission Date: 20250408
  Serious: No
  Sender: TAKEDA
  Company Number: US-TAKEDA-2021TUS031852

PATIENT
  Sex: Female
  Weight: 81 kg

DRUGS (46)
  1. HUMAN IMMUNOGLOBULIN G [Suspect]
     Active Substance: HUMAN IMMUNOGLOBULIN G
     Indication: Immunodeficiency common variable
     Dosage: 10 GRAM, 1/WEEK
     Dates: start: 20210518
  2. ACETAMINOPHEN [Concomitant]
     Active Substance: ACETAMINOPHEN
  3. DIPHENHYDRAMINE [Concomitant]
     Active Substance: DIPHENHYDRAMINE
  4. EPINEPHRINE [Concomitant]
     Active Substance: EPINEPHRINE
  5. Lmx [Concomitant]
  6. FLUTICASONE [Concomitant]
     Active Substance: FLUTICASONE
  7. ADVAIR HFA [Concomitant]
     Active Substance: FLUTICASONE PROPIONATE\SALMETEROL XINAFOATE
  8. LANTUS SOLOSTAR [Concomitant]
     Active Substance: INSULIN GLARGINE
  9. EPIPEN [Concomitant]
     Active Substance: EPINEPHRINE
  10. GLUCAGON [Concomitant]
     Active Substance: GLUCAGON
  11. SINGULAIR [Concomitant]
     Active Substance: MONTELUKAST SODIUM
  12. PROTONIX [Concomitant]
     Active Substance: PANTOPRAZOLE SODIUM
  13. LIPITOR [Concomitant]
     Active Substance: ATORVASTATIN CALCIUM
  14. TRAMADOL [Concomitant]
     Active Substance: TRAMADOL
  15. WELLBUTRIN SR [Concomitant]
     Active Substance: BUPROPION HYDROCHLORIDE
  16. BYDUREON BCISE [Concomitant]
     Active Substance: EXENATIDE
  17. CETIRIZINE [Concomitant]
     Active Substance: CETIRIZINE HYDROCHLORIDE
  18. GABAPENTIN [Concomitant]
     Active Substance: GABAPENTIN
  19. LEXAPRO [Concomitant]
     Active Substance: ESCITALOPRAM OXALATE
  20. TRAZODONE [Concomitant]
     Active Substance: TRAZODONE HYDROCHLORIDE
  21. CYCLOBENZAPRINE [Concomitant]
     Active Substance: CYCLOBENZAPRINE
  22. HYDROXYZINE [Concomitant]
     Active Substance: HYDROXYZINE HYDROCHLORIDE
  23. AZELASTINE [Concomitant]
     Active Substance: AZELASTINE
  24. TYLENOL [Concomitant]
     Active Substance: ACETAMINOPHEN
  25. DOCUSATE SODIUM [Concomitant]
     Active Substance: DOCUSATE SODIUM
  26. LUNESTA [Concomitant]
     Active Substance: ESZOPICLONE
  27. TRIAMCINOLONE [Concomitant]
     Active Substance: TRIAMCINOLONE
  28. FLUTICASONE PROPIONATE [Concomitant]
     Active Substance: FLUTICASONE PROPIONATE
  29. PROAIR HFA [Concomitant]
     Active Substance: ALBUTEROL SULFATE
  30. TRAMADOL HCL [Concomitant]
     Active Substance: TRAMADOL HYDROCHLORIDE
  31. TRIAMCINOLONE ACETONIDE [Concomitant]
     Active Substance: TRIAMCINOLONE ACETONIDE
  32. AZELASTINE HYDROCHLORIDE [Concomitant]
     Active Substance: AZELASTINE HYDROCHLORIDE
  33. CYCLOBENZAPRINE HYDROCHLORIDE [Concomitant]
     Active Substance: CYCLOBENZAPRINE HYDROCHLORIDE
  34. TRAZODONE HCL [Concomitant]
     Active Substance: TRAZODONE HYDROCHLORIDE
  35. Calcium citrate + d3 [Concomitant]
  36. HYDROXYZINE HYDROCHLORIDE [Concomitant]
     Active Substance: HYDROXYZINE HYDROCHLORIDE
  37. CETIRIZINE HCL [Concomitant]
     Active Substance: CETIRIZINE HYDROCHLORIDE
  38. DIPHENHYDRAMINE HYDROCHLORIDE [Concomitant]
     Active Substance: DIPHENHYDRAMINE HYDROCHLORIDE
  39. AZELASTINE HYDROCHLORIDE\FLUTICASONE PROPIONATE [Concomitant]
     Active Substance: AZELASTINE HYDROCHLORIDE\FLUTICASONE PROPIONATE
  40. CYCLOBENZAPRINE HYDROCHLORIDE [Concomitant]
     Active Substance: CYCLOBENZAPRINE HYDROCHLORIDE
  41. PANTOPRAZOLE SODIUM [Concomitant]
     Active Substance: PANTOPRAZOLE SODIUM
  42. SUCRALFATE G [Concomitant]
  43. MONTELUKAST SODIUM [Concomitant]
     Active Substance: MONTELUKAST SODIUM
  44. IRON [Concomitant]
     Active Substance: IRON
  45. OZEMPIC OR PEN INJCTR [Concomitant]
  46. XYZAL [Concomitant]
     Active Substance: LEVOCETIRIZINE DIHYDROCHLORIDE

REACTIONS (8)
  - COVID-19 [Unknown]
  - Bronchitis [Unknown]
  - Urinary tract infection [Unknown]
  - Seasonal allergy [Unknown]
  - Product dose omission issue [Unknown]
  - Product use issue [Unknown]
  - Influenza [Unknown]
  - Fatigue [Unknown]
